FAERS Safety Report 8830928 (Version 4)
Quarter: 2012Q4

REPORT INFORMATION
  Report Type: Report from Study
  Country: ZA (occurrence: ZA)
  Receive Date: 20121009
  Receipt Date: 20121026
  Transmission Date: 20130627
  Serious: Yes (Death, Hospitalization)
  Sender: FDA-Public Use
  Company Number: ZA-SANOFI-AVENTIS-2012SA072271

PATIENT
  Age: 66 Year
  Sex: Female
  Weight: 62 kg

DRUGS (23)
  1. DOCETAXEL [Suspect]
     Indication: BREAST CANCER
     Route: 041
     Dates: start: 20111208, end: 20111208
  2. DOCETAXEL [Suspect]
     Indication: BREAST CANCER
     Route: 041
  3. DOCETAXEL [Suspect]
     Indication: BREAST CANCER
     Route: 041
  4. DOCETAXEL [Suspect]
     Indication: BREAST CANCER
     Route: 041
  5. DOCETAXEL [Suspect]
     Indication: BREAST CANCER
     Route: 041
  6. DOCETAXEL [Suspect]
     Indication: BREAST CANCER
     Route: 041
  7. DOCETAXEL [Suspect]
     Indication: BREAST CANCER
     Route: 041
  8. DOCETAXEL [Suspect]
     Indication: BREAST CANCER
     Route: 041
  9. DOCETAXEL [Suspect]
     Indication: BREAST CANCER
     Route: 041
  10. DOCETAXEL [Suspect]
     Indication: BREAST CANCER
     Route: 041
     Dates: start: 20120709, end: 20120709
  11. BLINDED THERAPY [Suspect]
     Indication: BREAST CANCER
     Route: 065
     Dates: start: 20111208, end: 20111208
  12. BLINDED THERAPY [Suspect]
     Indication: BREAST CANCER
     Route: 065
  13. BLINDED THERAPY [Suspect]
     Indication: BREAST CANCER
     Route: 065
  14. BLINDED THERAPY [Suspect]
     Indication: BREAST CANCER
     Route: 065
  15. BLINDED THERAPY [Suspect]
     Indication: BREAST CANCER
     Route: 065
  16. BLINDED THERAPY [Suspect]
     Indication: BREAST CANCER
     Route: 065
  17. BLINDED THERAPY [Suspect]
     Indication: BREAST CANCER
     Route: 065
  18. BLINDED THERAPY [Suspect]
     Indication: BREAST CANCER
     Route: 065
  19. BLINDED THERAPY [Suspect]
     Indication: BREAST CANCER
     Route: 065
  20. BLINDED THERAPY [Suspect]
     Indication: BREAST CANCER
     Route: 065
     Dates: start: 20120709, end: 20120709
  21. SPECTRAPAIN [Concomitant]
  22. VITAMIN B [Concomitant]
  23. PARACETAMOL [Concomitant]

REACTIONS (2)
  - Death [Fatal]
  - Pleural effusion [Not Recovered/Not Resolved]
